FAERS Safety Report 9242807 (Version 1)
Quarter: 2013Q2

REPORT INFORMATION
  Report Type: Spontaneous
  Country: US (occurrence: US)
  Receive Date: 20130419
  Receipt Date: 20130419
  Transmission Date: 20140414
  Serious: No
  Sender: FDA-Public Use
  Company Number: US-009507513-1304USA010186

PATIENT
  Sex: Female

DRUGS (2)
  1. CLARITIN-D 24 HOUR [Suspect]
     Indication: PRODUCT USED FOR UNKNOWN INDICATION
     Dosage: UNK, UNKNOWN
     Route: 048
  2. EXCEDRIN (ACETAMINOPHEN (+) CAFFEINE) [Concomitant]
     Indication: MIGRAINE
     Dosage: UNK, UNKNOWN

REACTIONS (1)
  - Drug screen positive [Unknown]
